FAERS Safety Report 23745895 (Version 1)
Quarter: 2024Q2

REPORT INFORMATION
  Report Type: Spontaneous
  Country: JP (occurrence: JP)
  Receive Date: 20240416
  Receipt Date: 20240416
  Transmission Date: 20240717
  Serious: Yes (Other)
  Sender: FDA-Public Use
  Company Number: JP-DSJP-DSJ-2024-116152

PATIENT

DRUGS (1)
  1. DENOSUMAB [Suspect]
     Active Substance: DENOSUMAB
     Indication: Bone density decreased
     Dosage: UNK UNK, ONCE EVERY 6 MO, ABOUT 10 TIMES IN TOTAL
     Route: 065
     Dates: start: 201809

REACTIONS (5)
  - Gastric cancer [Not Recovered/Not Resolved]
  - Gastrectomy [Not Recovered/Not Resolved]
  - Tooth disorder [Not Recovered/Not Resolved]
  - Endodontic procedure [Not Recovered/Not Resolved]
  - Gingival abscess [Unknown]
